FAERS Safety Report 4918148-1 (Version None)
Quarter: 2006Q1

REPORT INFORMATION
  Report Type: 
  Country: None (occurrence: None)
  Receive Date: 20060215
  Receipt Date: 20060131
  Transmission Date: 20060701
  Serious: Yes (Life-Threatening, Hospitalization)
  Sender: FDA-Public Use
  Company Number: 2006020698

PATIENT
  Age: 75 Year
  Sex: Male
  Weight: 47 kg

DRUGS (5)
  1. IRINOTECAN HCL [Suspect]
     Indication: COLORECTAL CANCER
     Dosage: 180 MG, INTRAVENOUS
     Route: 042
     Dates: start: 20051208, end: 20060105
  2. FLUOROURACIL [Suspect]
     Indication: COLORECTAL CANCER
     Dosage: 550 MG, INTRAVENOUS; 3400 MG, INTRAVENOUS
     Route: 042
     Dates: end: 20060105
  3. FLUOROURACIL [Suspect]
     Indication: COLORECTAL CANCER
     Dosage: 550 MG, INTRAVENOUS; 3400 MG, INTRAVENOUS
     Route: 042
     Dates: start: 20051208
  4. CALCIUM LEVOFOLINATE (CALCIUM LEVOFOLINATE) [Concomitant]
  5. RED BLOOD CELLS [Concomitant]

REACTIONS (7)
  - CANDIDIASIS [None]
  - DIARRHOEA [None]
  - HAEMOGLOBIN DECREASED [None]
  - INTERSTITIAL LUNG DISEASE [None]
  - LEUKOPENIA [None]
  - NEUTROPENIA [None]
  - THROMBOCYTOPENIA [None]
